FAERS Safety Report 5294434-3 (Version None)
Quarter: 2007Q2

REPORT INFORMATION
  Report Type: 
  Country: None (occurrence: None)
  Receive Date: 20070412
  Receipt Date: 20070405
  Transmission Date: 20071010
  Serious: Yes (Life-Threatening, Hospitalization)
  Sender: FDA-Public Use
  Company Number: PHEH2007US04483

PATIENT
  Age: 30 Year
  Sex: Female
  Weight: 71.655 kg

DRUGS (7)
  1. ZELNORM [Suspect]
     Indication: IRRITABLE BOWEL SYNDROME
     Dosage: 6 MG, BID
     Route: 048
     Dates: start: 20050101, end: 20070405
  2. TOPAMAX [Concomitant]
  3. PRILOSEC [Concomitant]
  4. ZESTRIL [Concomitant]
  5. REGLAN [Concomitant]
  6. NORTRIPTYLINE HCL [Concomitant]
  7. PHENERGAN HCL [Concomitant]

REACTIONS (4)
  - CATHETERISATION CARDIAC [None]
  - CHEST PAIN [None]
  - CORONARY ARTERIAL STENT INSERTION [None]
  - CORONARY ARTERY OCCLUSION [None]
